FAERS Safety Report 5900911-1 (Version None)
Quarter: 2008Q3

REPORT INFORMATION
  Report Type: 
  Country: None (occurrence: None)
  Receive Date: 20080929
  Receipt Date: 20080919
  Transmission Date: 20090109
  Serious: Yes (Other)
  Sender: FDA-Public Use
  Company Number: PHHY2008GB21483

PATIENT
  Sex: Female
  Weight: 50 kg

DRUGS (4)
  1. EXELON [Suspect]
     Indication: DEMENTIA WITH LEWY BODIES
     Dosage: 6 MG DAILY
     Route: 048
     Dates: start: 20080723, end: 20080910
  2. EXELON [Suspect]
     Indication: HALLUCINATION
  3. TEMAZEPAM [Concomitant]
     Indication: INSOMNIA
     Dosage: 5 MG DAILY
     Route: 048
     Dates: start: 20080902
  4. ACETAMINOPHEN W/ CODEINE [Concomitant]
     Indication: ANALGESIA
     Dosage: 8/500 MG (1 TAB)/DAILY
     Route: 048
     Dates: start: 20080908

REACTIONS (3)
  - CONDITION AGGRAVATED [None]
  - DIZZINESS [None]
  - ORTHOSTATIC HYPOTENSION [None]
